FAERS Safety Report 4994260-6 (Version None)
Quarter: 2006Q2

REPORT INFORMATION
  Report Type: 
  Country: None (occurrence: None)
  Receive Date: 20060503
  Receipt Date: 20060417
  Transmission Date: 20061013
  Serious: Yes (Death)
  Sender: FDA-Public Use
  Company Number: DSA_70892_2006

PATIENT
  Age: 14 Month
  Sex: Female

DRUGS (1)
  1. METHADONE HCL [Suspect]
     Dosage: DF PO
     Route: 048

REACTIONS (6)
  - ASPHYXIA [None]
  - COMA [None]
  - INTENTIONAL DRUG MISUSE [None]
  - MULTI-ORGAN DISORDER [None]
  - PULMONARY OEDEMA [None]
  - VICTIM OF CRIME [None]
